FAERS Safety Report 23775366 (Version 1)
Quarter: 2024Q2

REPORT INFORMATION
  Report Type: Report from Study
  Country: FR (occurrence: FR)
  Receive Date: 20240423
  Receipt Date: 20240423
  Transmission Date: 20240716
  Serious: Yes (Other)
  Sender: FDA-Public Use
  Company Number: FR-MIRATI-MT2024PM06483

PATIENT
  Age: 71 Year
  Sex: Female
  Weight: 52 kg

DRUGS (21)
  1. KRAZATI [Suspect]
     Active Substance: ADAGRASIB
     Indication: Bronchial carcinoma
     Dosage: 1200 MG, QD
     Route: 048
     Dates: start: 20230920
  2. ENOXAPARIN SODIUM [Concomitant]
     Active Substance: ENOXAPARIN SODIUM
  3. POLYETHYLENE GLYCOLS [Concomitant]
     Active Substance: POLYETHYLENE GLYCOLS
  4. CITALOPRAM [Concomitant]
     Active Substance: CITALOPRAM\CITALOPRAM HYDROBROMIDE
  5. FUROSEMIDE [Concomitant]
     Active Substance: FUROSEMIDE
  6. NEBIVOLOL [Concomitant]
     Active Substance: NEBIVOLOL
  7. METOCLOPRAMIDE [Concomitant]
     Active Substance: METOCLOPRAMIDE
  8. CHOLECALCIFEROL [Concomitant]
     Active Substance: CHOLECALCIFEROL
  9. ACETAMINOPHEN\OPIUM [Concomitant]
     Active Substance: ACETAMINOPHEN\OPIUM
  10. MAGNESIUM [Concomitant]
     Active Substance: MAGNESIUM
  11. MINERAL OIL [Concomitant]
     Active Substance: MINERAL OIL
  12. PHLOROGLUCINOL DIHYDRATE [Concomitant]
     Active Substance: PHLOROGLUCINOL DIHYDRATE
  13. MONTMORILLONITE [Concomitant]
     Active Substance: MONTMORILLONITE
  14. ZOPICLONE [Concomitant]
     Active Substance: ZOPICLONE
  15. PERINDOPRIL [Concomitant]
     Active Substance: PERINDOPRIL
  16. TRIMEBUTINE [Concomitant]
     Active Substance: TRIMEBUTINE
  17. ALPRAZOLAM [Concomitant]
     Active Substance: ALPRAZOLAM
  18. GLYCOPYRRONIUM\INDACATEROL [Concomitant]
     Active Substance: GLYCOPYRRONIUM\INDACATEROL
  19. INDACATEROL [Concomitant]
     Active Substance: INDACATEROL
  20. CALCIUM PHOSPHATE, DIBASIC, ANHYDROUS\MAGNESIUM GLYCEROPHOSPHATE\PHOSP [Concomitant]
     Active Substance: CALCIUM PHOSPHATE, DIBASIC, ANHYDROUS\MAGNESIUM GLYCEROPHOSPHATE\PHOSPHORIC ACID\SODIUM PHOSPHATE, D
  21. ASPIRIN [Concomitant]
     Active Substance: ASPIRIN
     Dosage: 75 MG

REACTIONS (2)
  - Renal failure [Not Recovered/Not Resolved]
  - Diarrhoea [Recovering/Resolving]

NARRATIVE: CASE EVENT DATE: 20231001
